FAERS Safety Report 21390282 (Version 1)
Quarter: 2022Q3

REPORT INFORMATION
  Report Type: Spontaneous
  Country: US (occurrence: None)
  Receive Date: 20220929
  Receipt Date: 20220929
  Transmission Date: 20221027
  Serious: No
  Sender: FDA-Public Use
  Company Number: US-MIMS-CORIMC-1414

PATIENT
  Age: 11 Year
  Sex: Male

DRUGS (1)
  1. AZSTARYS [Suspect]
     Active Substance: DEXMETHYLPHENIDATE HYDROCHLORIDE\SERDEXMETHYLPHENIDATE CHLORIDE
     Indication: Attention deficit hyperactivity disorder
     Dosage: QD
     Route: 048
     Dates: start: 202207

REACTIONS (3)
  - Hypersomnia [Unknown]
  - Product dose omission issue [Unknown]
  - Product colour issue [Unknown]
